FAERS Safety Report 7334415-9 (Version None)
Quarter: 2011Q1

REPORT INFORMATION
  Report Type: 
  Country: None (occurrence: None)
  Receive Date: 20110307
  Receipt Date: 20110224
  Transmission Date: 20110831
  Serious: Yes (Death)
  Sender: FDA-Public Use
  Company Number: JP-CELGENEUS-087-21880-10111408

PATIENT
  Age: 76 Year
  Sex: Male

DRUGS (4)
  1. REVLIMID [Suspect]
     Indication: MYELODYSPLASTIC SYNDROME
     Dosage: 5 MILLIGRAM
     Route: 048
     Dates: start: 20101005, end: 20101020
  2. HERBESSER [Concomitant]
     Indication: HYPERTENSION
     Route: 065
     Dates: start: 20060101, end: 20101220
  3. CALSLOT [Concomitant]
     Indication: HYPERTENSION
     Route: 065
     Dates: start: 20060101, end: 20101220
  4. LOCHOL [Concomitant]
     Indication: HYPERTENSION
     Route: 065
     Dates: start: 20060101, end: 20101220

REACTIONS (2)
  - WHITE BLOOD CELL COUNT DECREASED [None]
  - PNEUMONIA [None]
